FAERS Safety Report 20494869 (Version 3)
Quarter: 2022Q1

REPORT INFORMATION
  Report Type: Other
  Country: AR (occurrence: AR)
  Receive Date: 20220221
  Receipt Date: 20220301
  Transmission Date: 20220424
  Serious: Yes (Other)
  Sender: FDA-Public Use
  Company Number: AR-002147023-NVSC2021AR297295

PATIENT
  Age: 76 Year
  Sex: Female

DRUGS (2)
  1. XOLAIR [Suspect]
     Active Substance: OMALIZUMAB
     Indication: Asthma
     Route: 058
     Dates: start: 20170601, end: 20180201
  2. XOLAIR [Suspect]
     Active Substance: OMALIZUMAB
     Route: 058

REACTIONS (8)
  - Pulmonary congestion [Unknown]
  - Pneumonia [Recovered/Resolved]
  - Fatigue [Unknown]
  - Injection site pain [Recovered/Resolved]
  - Bronchitis [Recovered/Resolved]
  - Chronic obstructive pulmonary disease [Unknown]
  - Respiratory disorder [Unknown]
  - Drug ineffective [Unknown]

NARRATIVE: CASE EVENT DATE: 20220119
